FAERS Safety Report 7504727-4 (Version None)
Quarter: 2011Q2

REPORT INFORMATION
  Report Type: 
  Country: None (occurrence: None)
  Receive Date: 20110525
  Receipt Date: 20110412
  Transmission Date: 20111010
  Serious: No
  Sender: FDA-Public Use
  Company Number: US-AMGEN-USASP2011019600

PATIENT
  Age: 44 Year
  Sex: Female

DRUGS (3)
  1. NPLATE [Suspect]
     Indication: IDIOPATHIC THROMBOCYTOPENIC PURPURA
     Dates: start: 20091216
  2. IVIGLOB-EX [Concomitant]
     Dosage: UNK
     Dates: start: 20091204
  3. RITUXIMAB [Concomitant]
     Dosage: UNK
     Dates: start: 20091207

REACTIONS (1)
  - INJECTION SITE PAIN [None]
